FAERS Safety Report 17660747 (Version 4)
Quarter: 2020Q4

REPORT INFORMATION
  Report Type: Report from Study
  Country: None (occurrence: US)
  Receive Date: 20200413
  Receipt Date: 20201111
  Transmission Date: 20210113
  Serious: Yes (Hospitalization, Other)
  Sender: FDA-Public Use
  Company Number: US-ABBVIE-19K-163-2848282-00

PATIENT
  Sex: Female
  Weight: 44.95 kg

DRUGS (7)
  1. VITAMIN D3 [Concomitant]
     Active Substance: CHOLECALCIFEROL
     Indication: PRODUCT USED FOR UNKNOWN INDICATION
  2. DILAUDID [Concomitant]
     Active Substance: HYDROMORPHONE HYDROCHLORIDE
     Indication: PAIN
  3. VALIUM [Concomitant]
     Active Substance: DIAZEPAM
     Indication: PRODUCT USED FOR UNKNOWN INDICATION
  4. ZOLPIDEM [Concomitant]
     Active Substance: ZOLPIDEM TARTRATE
     Indication: PRODUCT USED FOR UNKNOWN INDICATION
  5. HUMIRA [Suspect]
     Active Substance: ADALIMUMAB
     Indication: CROHN^S DISEASE
     Route: 058
     Dates: start: 2019
  6. MAGNESIUM OXIDE. [Concomitant]
     Active Substance: MAGNESIUM OXIDE
     Indication: PRODUCT USED FOR UNKNOWN INDICATION
  7. HUMIRA [Suspect]
     Active Substance: ADALIMUMAB
     Indication: PSORIASIS
     Route: 058
     Dates: end: 201909

REACTIONS (24)
  - Joint instability [Recovered/Resolved]
  - Lower limb fracture [Unknown]
  - Arthralgia [Recovering/Resolving]
  - Dysuria [Unknown]
  - Rectal lesion [Recovering/Resolving]
  - Abdominal pain upper [Unknown]
  - Dry eye [Unknown]
  - Anal fistula [Recovering/Resolving]
  - Femur fracture [Recovered/Resolved]
  - Fall [Recovered/Resolved]
  - Arthralgia [Not Recovered/Not Resolved]
  - Rectal abscess [Recovered/Resolved]
  - Unevaluable event [Recovering/Resolving]
  - Oropharyngeal pain [Unknown]
  - Rectal prolapse [Unknown]
  - Crohn^s disease [Recovered/Resolved]
  - Crohn^s disease [Recovered/Resolved]
  - Proctalgia [Unknown]
  - Cartilage atrophy [Recovering/Resolving]
  - Gastrointestinal motility disorder [Not Recovered/Not Resolved]
  - Chills [Unknown]
  - Therapeutic product effect decreased [Unknown]
  - Crohn^s disease [Not Recovered/Not Resolved]
  - Colonic fistula [Unknown]

NARRATIVE: CASE EVENT DATE: 2015
